FAERS Safety Report 6174397-9 (Version None)
Quarter: 2009Q2

REPORT INFORMATION
  Report Type: 
  Country: None (occurrence: None)
  Receive Date: 20090430
  Receipt Date: 20090421
  Transmission Date: 20091009
  Serious: Yes (Hospitalization, Other)
  Sender: FDA-Public Use
  Company Number: AU-PFIZER INC-2009200772

PATIENT

DRUGS (7)
  1. LYRICA [Suspect]
     Indication: TRIGEMINAL NEURALGIA
     Dosage: 75 MG, 3X/DAY
  2. LYRICA [Suspect]
     Dosage: 150 MG, 2X/DAY
  3. TEGRETOL [Concomitant]
     Dosage: 600 MG, 1X/DAY
  4. LEVOTHYROXINE SODIUM [Concomitant]
  5. ACETAMINOPHEN W/ CODEINE [Concomitant]
  6. OXYNORM [Concomitant]
  7. DRUG, UNSPECIFIED [Concomitant]
     Indication: BLOOD PRESSURE

REACTIONS (8)
  - DIZZINESS [None]
  - EATING DISORDER [None]
  - HEADACHE [None]
  - HYPERTENSION [None]
  - KIDNEY INFECTION [None]
  - NAUSEA [None]
  - TREMOR [None]
  - URINARY TRACT INFECTION [None]
